FAERS Safety Report 20018604 (Version 1)
Quarter: 2021Q4

REPORT INFORMATION
  Report Type: Spontaneous
  Country: FR (occurrence: FR)
  Receive Date: 20211101
  Receipt Date: 20211101
  Transmission Date: 20220303
  Serious: No
  Sender: FDA-Public Use
  Company Number: None

PATIENT
  Age: 70 Year
  Sex: Male

DRUGS (2)
  1. CIALIS [Suspect]
     Active Substance: TADALAFIL
     Indication: Erectile dysfunction
     Dosage: 1 DOSAGE FORM, WEEKLY (1/W)
     Route: 048
     Dates: start: 20190115
  2. VIAGRA [Suspect]
     Active Substance: SILDENAFIL CITRATE
     Indication: Erectile dysfunction
     Dosage: UNK UNK, UNKNOWN
     Route: 048

REACTIONS (2)
  - Erythema [Recovered/Resolved]
  - Vision blurred [Recovered/Resolved]
